FAERS Safety Report 6108504-0 (Version None)
Quarter: 2009Q1

REPORT INFORMATION
  Report Type: 
  Country: None (occurrence: None)
  Receive Date: 20090309
  Receipt Date: 20090303
  Transmission Date: 20090719
  Serious: No
  Sender: FDA-Public Use
  Company Number: US-B.I. PHARMACEUTICALS,INC./RIDGEFIELD-2009-BP-02619BP

PATIENT
  Age: 38 Year
  Sex: Female

DRUGS (2)
  1. MIRAPEX [Suspect]
     Indication: PARKINSON'S DISEASE
     Dosage: 3MG
     Route: 048
  2. SINEMET [Suspect]

REACTIONS (2)
  - EATING DISORDER [None]
  - WEIGHT INCREASED [None]
